FAERS Safety Report 8160912-2 (Version None)
Quarter: 2012Q1

REPORT INFORMATION
  Report Type: 
  Country: None (occurrence: None)
  Receive Date: 20120223
  Receipt Date: 20120216
  Transmission Date: 20120608
  Serious: Yes (Hospitalization)
  Sender: FDA-Public Use
  Company Number: US-MERCK-1103USA00945

PATIENT
  Age: 56 Year
  Sex: Female

DRUGS (4)
  1. ALENDRONATE SODIUM [Suspect]
     Indication: OSTEOPENIA
     Route: 048
     Dates: start: 20081201, end: 20090901
  2. FOSAMAX [Suspect]
     Route: 048
  3. FOSAMAX [Suspect]
     Indication: OSTEOPENIA
     Route: 048
     Dates: start: 20011201, end: 20081101
  4. CALCIUM (UNSPECIFIED) [Concomitant]
     Route: 065
     Dates: start: 20000101

REACTIONS (11)
  - NASOPHARYNGITIS [None]
  - IMPAIRED HEALING [None]
  - BLOOD POTASSIUM DECREASED [None]
  - LOW TURNOVER OSTEOPATHY [None]
  - TIBIA FRACTURE [None]
  - GALLBLADDER DISORDER [None]
  - INFECTION [None]
  - FEMUR FRACTURE [None]
  - FUNCTIONAL GASTROINTESTINAL DISORDER [None]
  - WEIGHT DECREASED [None]
  - ASTHMA [None]
